FAERS Safety Report 9633090 (Version 2)
Quarter: 2013Q4

REPORT INFORMATION
  Report Type: Report from Study
  Country: JP (occurrence: JP)
  Receive Date: 20131018
  Receipt Date: 20131018
  Transmission Date: 20140711
  Serious: Yes (Hospitalization)
  Sender: FDA-Public Use
  Company Number: JP-ASTRAZENECA-2012SE16766

PATIENT
  Age: 27861 Day
  Sex: Male

DRUGS (10)
  1. AZD6140 [Suspect]
     Indication: CORONARY ARTERY DISEASE
     Route: 048
     Dates: start: 20111116, end: 20120210
  2. AZD6140 [Suspect]
     Indication: CORONARY ARTERY DISEASE
     Route: 048
     Dates: start: 20120212, end: 20120329
  3. BAYASPIRIN [Suspect]
     Route: 048
     Dates: end: 20120210
  4. BAYASPIRIN [Suspect]
     Route: 048
     Dates: start: 20120212
  5. ARTIST [Concomitant]
     Indication: HYPERTENSION
     Route: 048
  6. CHOLEBINE MINI [Concomitant]
     Indication: DYSLIPIDAEMIA
     Route: 048
  7. EPALDOSE [Concomitant]
     Indication: DIABETIC NEUROPATHY
     Route: 048
  8. STOMARCON D [Concomitant]
     Indication: GASTRITIS PROPHYLAXIS
     Route: 048
  9. MAGNESIUM OXIDE [Concomitant]
     Indication: CONSTIPATION
     Route: 048
  10. NU-LOTAN [Concomitant]
     Indication: HYPERTENSION
     Route: 048

REACTIONS (1)
  - Face injury [Recovered/Resolved]
